FAERS Safety Report 10478984 (Version 1)
Quarter: 2014Q3

REPORT INFORMATION
  Report Type: Report from Study
  Country: US (occurrence: US)
  Receive Date: 20140926
  Receipt Date: 20140926
  Transmission Date: 20150326
  Serious: Yes (Hospitalization)
  Sender: FDA-Public Use
  Company Number: US-MERCK-1409USA013270

PATIENT
  Age: 46 Year
  Sex: Female
  Weight: 65.9 kg

DRUGS (6)
  1. VORINOSTAT [Suspect]
     Active Substance: VORINOSTAT
     Indication: ACUTE MYELOID LEUKAEMIA
     Dosage: 500 MG, TID, ON DAYS 1-3,INDUCTION AND RE-INDUCTION (CYCLE = 28 DAYS)
     Route: 048
     Dates: start: 20140222, end: 20140224
  2. VORINOSTAT [Suspect]
     Active Substance: VORINOSTAT
     Dosage: 500 MG, TID,ON DAYS 1-3, CONSOLIDATION (CYCLE= 28 DAYS, MAXIMUM 4 CYCLES)
     Route: 048
     Dates: start: 20140717, end: 20140719
  3. CYTARABINE. [Suspect]
     Active Substance: CYTARABINE
     Indication: ACUTE MYELOID LEUKAEMIA
     Dosage: 1500 MG/M2, QD, CONTINUOUS IV INFUSION ON DAYS 4-7, INDUCTION ANDRE-INDUCTION (CYCLE = 28 DAYS)
     Route: 042
     Dates: start: 20140225, end: 20140228
  4. CYTARABINE. [Suspect]
     Active Substance: CYTARABINE
     Dosage: 750 MG/M2, QD,  CONTINUOUS IV INFUSION ON DAYS 4-6, CONSOLIDATION (CYCLE= 28 DAYS, MAXIMUM 4 CYCLES)
     Route: 042
     Dates: start: 20140719, end: 20140722
  5. IDARUBICIN [Suspect]
     Active Substance: IDARUBICIN
     Indication: ACUTE MYELOID LEUKAEMIA
     Dosage: 12 MG/M2, QD,  OVER 15 MIN ON DAYS 4-6,INDUCTION AND RE-INDUCTION (CYCLE = 28 DAYS)
     Route: 042
     Dates: start: 20140225, end: 20140227
  6. IDARUBICIN [Suspect]
     Active Substance: IDARUBICIN
     Dosage: 8 MG/M2, QD,OVER 15 MIN ON DAYS 4-5, CONSOLIDATION (CYCLE= 28 DAYS, MAXIMUM 4 CYCLES)
     Route: 042
     Dates: start: 20140719, end: 20140720

REACTIONS (2)
  - Febrile neutropenia [Recovered/Resolved]
  - Abdominal pain [Recovered/Resolved]

NARRATIVE: CASE EVENT DATE: 20140728
